FAERS Safety Report 5717197-3 (Version None)
Quarter: 2008Q2

REPORT INFORMATION
  Report Type: 
  Country: None (occurrence: None)
  Receive Date: 20080423
  Receipt Date: 20080408
  Transmission Date: 20081010
  Serious: No
  Sender: FDA-Public Use
  Company Number: 002#2#2008-00225

PATIENT
  Age: 77 Year
  Sex: Female
  Weight: 81.1939 kg

DRUGS (3)
  1. NEUPRO [Suspect]
     Indication: PARKINSON'S DISEASE
     Dosage: 4MG/24H,  1 IN 1 D, TRANSDERMAL
     Route: 062
     Dates: start: 20071001
  2. DIOVAN [Concomitant]
  3. STALEVO 100 [Concomitant]

REACTIONS (10)
  - ASTHENIA [None]
  - CONDITION AGGRAVATED [None]
  - DIZZINESS [None]
  - MALAISE [None]
  - MUSCLE SPASMS [None]
  - NAUSEA [None]
  - PHARMACEUTICAL PRODUCT COMPLAINT [None]
  - POOR QUALITY SLEEP [None]
  - TREMOR [None]
  - VISION BLURRED [None]
